FAERS Safety Report 10005951 (Version 4)
Quarter: 2014Q3

REPORT INFORMATION
  Report Type: Spontaneous
  Country: JP (occurrence: JP)
  Receive Date: 20140313
  Receipt Date: 20140903
  Transmission Date: 20150326
  Serious: Yes (Death, Other)
  Sender: FDA-Public Use
  Company Number: PHHY2014JP030245

PATIENT
  Age: 74 Year
  Sex: Female
  Weight: 44 kg

DRUGS (16)
  1. XELODA [Concomitant]
     Active Substance: CAPECITABINE
     Indication: BREAST CANCER STAGE II
     Dosage: 2100 MG, DAILY
     Route: 048
     Dates: start: 20041216, end: 20070323
  2. FARESTON [Concomitant]
     Active Substance: TOREMIFENE CITRATE
     Indication: BREAST CANCER STAGE II
  3. CHEMOTHERAPEUTICS [Concomitant]
     Active Substance: UNSPECIFIED INGREDIENT
  4. TAMOXIFEN CITRATE. [Concomitant]
     Active Substance: TAMOXIFEN CITRATE
     Indication: BREAST CANCER STAGE II
     Route: 048
     Dates: start: 19970902, end: 19990928
  5. ZOMETA [Suspect]
     Active Substance: ZOLEDRONIC ACID
     Indication: BREAST CANCER METASTATIC
     Dosage: 4 MG, QW4
     Route: 041
     Dates: start: 20060508, end: 20080508
  6. AREDIA [Suspect]
     Active Substance: PAMIDRONATE DISODIUM
     Indication: METASTASES TO BONE
  7. ARIMIDEX [Concomitant]
     Active Substance: ANASTROZOLE
     Indication: BREAST CANCER STAGE II
     Dosage: 1 MG, DAILY
     Route: 048
     Dates: start: 20010327, end: 20010629
  8. ADRIACIN [Concomitant]
     Active Substance: DOXORUBICIN HYDROCHLORIDE
     Indication: BREAST CANCER STAGE II
     Route: 042
     Dates: start: 20010713, end: 20030525
  9. AROMASIN [Concomitant]
     Active Substance: EXEMESTANE
     Indication: BREAST CANCER STAGE II
     Dosage: 1 DF, UNK
     Route: 048
     Dates: start: 20030603, end: 20030818
  10. ENDOXAN [Concomitant]
     Active Substance: CYCLOPHOSPHAMIDE
     Indication: BREAST CANCER STAGE II
     Route: 042
     Dates: start: 20010713, end: 20030429
  11. HYSRON [Concomitant]
     Active Substance: MEDROXYPROGESTERONE
     Indication: BREAST CANCER STAGE II
     Dosage: 3 DF, UNK
     Route: 048
     Dates: start: 20040202, end: 20041111
  12. ZOMETA [Suspect]
     Active Substance: ZOLEDRONIC ACID
     Indication: METASTASES TO BONE
  13. AREDIA [Suspect]
     Active Substance: PAMIDRONATE DISODIUM
     Indication: BREAST CANCER METASTATIC
     Dosage: 90 MG, PER ADMINISTRATION
     Route: 041
     Dates: start: 20040819, end: 20060313
  14. TEIROC [Suspect]
     Active Substance: ALENDRONATE SODIUM
     Indication: METASTASES TO BONE
     Dosage: 20 MG, DAILY
     Route: 042
     Dates: start: 20030722, end: 20040715
  15. TEIROC [Suspect]
     Active Substance: ALENDRONATE SODIUM
     Indication: BREAST CANCER STAGE II
  16. ASTHONE [Concomitant]
     Indication: BREAST CANCER STAGE II
     Dosage: 120 MG DAILY
     Route: 048
     Dates: start: 20000627, end: 200106

REACTIONS (21)
  - Gingival swelling [Not Recovered/Not Resolved]
  - Renal failure chronic [Unknown]
  - Gingivitis [Unknown]
  - Periodontitis [Unknown]
  - Oral disorder [Unknown]
  - Exposed bone in jaw [Not Recovered/Not Resolved]
  - Tenderness [Unknown]
  - Renal impairment [Unknown]
  - Gingival bleeding [Unknown]
  - Breast cancer stage II [Fatal]
  - Aortic valve incompetence [Unknown]
  - Anaemia [Unknown]
  - Mitral valve disease mixed [Unknown]
  - Nephrogenic anaemia [Unknown]
  - Gingival erythema [Not Recovered/Not Resolved]
  - Loose tooth [Not Recovered/Not Resolved]
  - Malignant neoplasm progression [Fatal]
  - Angina pectoris [Unknown]
  - Osteonecrosis of jaw [Not Recovered/Not Resolved]
  - Pain in jaw [Not Recovered/Not Resolved]
  - Bacterial infection [Unknown]

NARRATIVE: CASE EVENT DATE: 200710
